FAERS Safety Report 8214498-4 (Version None)
Quarter: 2012Q1

REPORT INFORMATION
  Report Type: 
  Country: None (occurrence: None)
  Receive Date: 20120316
  Receipt Date: 20120316
  Transmission Date: 20120608
  Serious: No
  Sender: FDA-Public Use
  Company Number: None

PATIENT
  Age: 19 Year
  Sex: Female
  Weight: 67.585 kg

DRUGS (1)
  1. RISPERDAL CONSTA [Suspect]
     Indication: CHILDHOOD DISINTEGRATIVE DISORDER
     Dosage: 50.0 MG
     Route: 030

REACTIONS (3)
  - SYRINGE ISSUE [None]
  - DEVICE OCCLUSION [None]
  - INCORRECT DOSE ADMINISTERED BY DEVICE [None]
